FAERS Safety Report 11489455 (Version 1)
Quarter: 2015Q3

REPORT INFORMATION
  Report Type: Spontaneous
  Country: US (occurrence: US)
  Receive Date: 20150910
  Receipt Date: 20150910
  Transmission Date: 20151125
  Serious: No
  Sender: FDA-Public Use
  Company Number: US-ROCHE-1490264

PATIENT
  Age: 49 Year
  Sex: Male

DRUGS (3)
  1. PEGASYS [Suspect]
     Active Substance: PEGINTERFERON ALFA-2A
     Indication: HEPATITIS C
     Route: 058
     Dates: start: 20141007, end: 20141112
  2. RIBASPHERE RIBAPAK [Suspect]
     Active Substance: RIBAVIRIN
     Indication: HEPATITIS C
     Dosage: 600 MG AT AM AND 400 MG AT PM
     Route: 048
     Dates: start: 20141007, end: 20141112
  3. SOVALDI [Suspect]
     Active Substance: SOFOSBUVIR
     Indication: HEPATITIS C
     Route: 048
     Dates: start: 20141007, end: 20141112

REACTIONS (9)
  - Rash generalised [Unknown]
  - Rash macular [Unknown]
  - Asthenia [Unknown]
  - Eye irritation [Unknown]
  - Abdominal pain upper [Unknown]
  - Injection site urticaria [Unknown]
  - Insomnia [Unknown]
  - Headache [Unknown]
  - Injection site pruritus [Unknown]

NARRATIVE: CASE EVENT DATE: 20141112
